FAERS Safety Report 10416092 (Version 1)
Quarter: 2014Q2

REPORT INFORMATION
  Report Type: Spontaneous
  Country: US (occurrence: None)
  Receive Date: 20140604
  Receipt Date: 20140604
  Transmission Date: 20141212
  Serious: Yes (Other)
  Sender: FDA-Public Use
  Company Number: 163-POMAL-14035593

PATIENT
  Age: 53 Year
  Sex: Female

DRUGS (1)
  1. POMALYST (POMALIDOMIDE) [Suspect]
     Indication: MYELODYSPLASTIC SYNDROME
     Dosage: 21 IN 28 D
     Dates: start: 20131213

REACTIONS (1)
  - Thrombosis [None]
